FAERS Safety Report 6680839-2 (Version None)
Quarter: 2010Q2

REPORT INFORMATION
  Report Type: 
  Country: None (occurrence: None)
  Receive Date: 20100412
  Receipt Date: 20100329
  Transmission Date: 20101027
  Serious: Yes (Hospitalization)
  Sender: FDA-Public Use
  Company Number: RU-1181365

PATIENT
  Sex: Female

DRUGS (1)
  1. MAXITROL [Suspect]
     Route: 047
     Dates: start: 20100327

REACTIONS (1)
  - VISUAL ACUITY REDUCED [None]
